FAERS Safety Report 16836837 (Version 1)
Quarter: 2019Q3

REPORT INFORMATION
  Report Type: Spontaneous
  Country: IT (occurrence: IT)
  Receive Date: 20190922
  Receipt Date: 20190922
  Transmission Date: 20191005
  Serious: Yes (Other)
  Sender: FDA-Public Use
  Company Number: IT-009507513-1909ITA006561

PATIENT
  Age: 67 Year
  Sex: Male

DRUGS (2)
  1. CANCIDAS [Suspect]
     Active Substance: CASPOFUNGIN ACETATE
     Indication: VASCULAR DEVICE INFECTION
     Dosage: 50 MILLIGRAM, QD; FORMULATION: POWDER FOR CONCENTRATE FOR SOLUTION FOR INFUSION
     Route: 042
  2. MEROPENEM. [Concomitant]
     Active Substance: MEROPENEM
     Dosage: UNK
     Route: 042

REACTIONS (1)
  - Drug ineffective [Unknown]
